FAERS Safety Report 14482593 (Version 1)
Quarter: 2018Q1

REPORT INFORMATION
  Report Type: Report from Study
  Country: None (occurrence: GB)
  Receive Date: 20180203
  Receipt Date: 20180203
  Transmission Date: 20180509
  Serious: Yes (Other)
  Sender: FDA-Public Use
  Company Number: GB-ABBVIE-18K-167-2245328-00

PATIENT
  Sex: Female

DRUGS (3)
  1. HUMIRA [Suspect]
     Active Substance: ADALIMUMAB
     Indication: RHEUMATOID ARTHRITIS
     Route: 058
  2. CANNABIS OIL [Concomitant]
     Active Substance: CANNABIS SATIVA SEED OIL
     Indication: INSOMNIA
  3. KALM [Concomitant]
     Indication: INSOMNIA

REACTIONS (7)
  - Loss of personal independence in daily activities [Recovering/Resolving]
  - Back disorder [Unknown]
  - Sleep disorder [Unknown]
  - Road traffic accident [Unknown]
  - Nerve root compression [Unknown]
  - Rheumatoid arthritis [Unknown]
  - Neuralgia [Recovering/Resolving]

NARRATIVE: CASE EVENT DATE: 2009
